FAERS Safety Report 8592030-3 (Version None)
Quarter: 2012Q3

REPORT INFORMATION
  Report Type: 
  Country: None (occurrence: None)
  Receive Date: 20120814
  Receipt Date: 20120807
  Transmission Date: 20120928
  Serious: Yes (Other)
  Sender: FDA-Public Use
  Company Number: PHEH2012US015585

PATIENT
  Sex: Female

DRUGS (1)
  1. GLEEVEC [Suspect]
     Indication: CHRONIC MYELOID LEUKAEMIA
     Dosage: 200 MG, UNK
     Route: 048
     Dates: start: 20110813

REACTIONS (6)
  - DYSURIA [None]
  - CYSTITIS [None]
  - URINARY TRACT INFECTION [None]
  - MUSCLE SPASMS [None]
  - KIDNEY INFECTION [None]
  - RENAL DISORDER [None]
